FAERS Safety Report 4814837-8 (Version None)
Quarter: 2005Q4

REPORT INFORMATION
  Report Type: 
  Country: None (occurrence: None)
  Receive Date: 20051028
  Receipt Date: 20051010
  Transmission Date: 20060501
  Serious: Yes (Other)
  Sender: FDA-Public Use
  Company Number: PHRM2005FR02754

PATIENT
  Age: 40 Year
  Sex: Female
  Weight: 99 kg

DRUGS (1)
  1. METHERGINE [Suspect]
     Indication: METRORRHAGIA
     Dosage: 375 MG, DAILY
     Route: 048
     Dates: start: 20051005, end: 20051009

REACTIONS (3)
  - FACE OEDEMA [None]
  - PARAESTHESIA [None]
  - TONGUE OEDEMA [None]
